FAERS Safety Report 22178740 (Version 4)
Quarter: 2023Q2

REPORT INFORMATION
  Report Type: Report from Study
  Country: BR (occurrence: BR)
  Receive Date: 20230405
  Receipt Date: 20230629
  Transmission Date: 20230722
  Serious: Yes (Hospitalization)
  Sender: FDA-Public Use
  Company Number: BR-ALXN-A202303124

PATIENT
  Age: 7 Year
  Sex: Male
  Weight: 37 kg

DRUGS (2)
  1. STRENSIQ [Suspect]
     Active Substance: ASFOTASE ALFA
     Indication: Hypophosphatasia
     Dosage: UNK, UNK, TIW
     Route: 058
     Dates: start: 20230213
  2. STRENSIQ [Suspect]
     Active Substance: ASFOTASE ALFA
     Dosage: UNK
     Route: 065

REACTIONS (3)
  - Cold sweat [Unknown]
  - Nervousness [Unknown]
  - Psychomotor hyperactivity [Unknown]
